FAERS Safety Report 8619105-4 (Version None)
Quarter: 2012Q3

REPORT INFORMATION
  Report Type: 
  Country: None (occurrence: None)
  Receive Date: 20120824
  Receipt Date: 20120822
  Transmission Date: 20120928
  Serious: Yes (Other)
  Sender: FDA-Public Use
  Company Number: PHHY2012DE072514

PATIENT
  Sex: Male

DRUGS (2)
  1. TIAPRIDEX [Concomitant]
     Dosage: UNK
  2. CLOZAPINE [Suspect]
     Indication: DEMENTIA
     Dates: start: 20120801

REACTIONS (2)
  - C-REACTIVE PROTEIN INCREASED [None]
  - LIPASE INCREASED [None]
